FAERS Safety Report 8501467-X (Version None)
Quarter: 2012Q3

REPORT INFORMATION
  Report Type: 
  Country: None (occurrence: None)
  Receive Date: 20120710
  Receipt Date: 20120703
  Transmission Date: 20120928
  Serious: Yes (Other)
  Sender: FDA-Public Use
  Company Number: BR-ROCHE-748336

PATIENT
  Sex: Female
  Weight: 111 kg

DRUGS (19)
  1. RITUXAN [Suspect]
  2. RITUXAN [Suspect]
  3. RITUXAN [Suspect]
  4. RITUXAN [Suspect]
  5. FOLIC ACID [Concomitant]
     Dosage: 1 TAB/DAY
  6. CYCLOSPORINE [Concomitant]
  7. LOSARTAN POTASSIUM [Concomitant]
     Indication: HYPERTENSION
     Dosage: 2 TAB/DAY
  8. CAPTOPRIL [Concomitant]
  9. PANTOPRAZOLE [Concomitant]
     Indication: PROPHYLAXIS
  10. FUROSEMIDE [Concomitant]
     Indication: POLYURIA
     Dosage: 1TAB/DAY
  11. AMLODIPINE [Concomitant]
     Dosage: 1 TAB/NIGHT
  12. CLONIDINE HYDROCHLORIDE [Concomitant]
     Indication: HYPERTENSION
  13. ALPRAZOLAM [Concomitant]
     Indication: ANTIDEPRESSANT THERAPY
     Dosage: 1 TAB/AT NIGHT
  14. BUPROPION HCL [Concomitant]
     Dosage: 2 TAB/NIGHT
  15. VITAMIN D [Concomitant]
  16. CITALOPRAM HYDROBROMIDE [Concomitant]
  17. CITALOPRAM HYDROBROMIDE [Concomitant]
  18. CLOXAZOLAM [Concomitant]
  19. RITUXAN [Suspect]
     Indication: RHEUMATOID ARTHRITIS
     Route: 042
     Dates: start: 20081201, end: 20110401

REACTIONS (19)
  - FEELING OF DESPAIR [None]
  - BLOOD IMMUNOGLOBULIN G INCREASED [None]
  - RED BLOOD CELL SEDIMENTATION RATE INCREASED [None]
  - PAIN [None]
  - SKIN DISCOLOURATION [None]
  - AMNESIA [None]
  - HYPERHIDROSIS [None]
  - AGITATION [None]
  - HYPERTENSION [None]
  - C-REACTIVE PROTEIN INCREASED [None]
  - HEPATIC PAIN [None]
  - SWELLING [None]
  - WHITE BLOOD CELL COUNT DECREASED [None]
  - ANAEMIA [None]
  - LIVER DISORDER [None]
  - ALOPECIA [None]
  - SOMNOLENCE [None]
  - PAIN IN EXTREMITY [None]
  - THERAPEUTIC RESPONSE DECREASED [None]
